FAERS Safety Report 5575566-9 (Version None)
Quarter: 2007Q4

REPORT INFORMATION
  Report Type: 
  Country: None (occurrence: None)
  Receive Date: 20071130
  Receipt Date: 20070822
  Transmission Date: 20080405
  Serious: No
  Sender: FDA-Public Use
  Company Number: US200707007233

PATIENT
  Age: 61 Year
  Sex: Male
  Weight: 163.3 kg

DRUGS (25)
  1. BYETTA [Suspect]
     Indication: TYPE 2 DIABETES MELLITUS
     Dosage: SEE IMAGE
     Route: 058
     Dates: start: 20050101, end: 20061201
  2. BYETTA [Suspect]
     Indication: TYPE 2 DIABETES MELLITUS
     Dosage: SEE IMAGE
     Route: 058
     Dates: start: 20070101, end: 20070101
  3. BYETTA [Suspect]
     Indication: TYPE 2 DIABETES MELLITUS
     Dosage: SEE IMAGE
     Route: 058
     Dates: start: 20050101
  4. BYETTA [Suspect]
     Indication: TYPE 2 DIABETES MELLITUS
     Dosage: SEE IMAGE
     Route: 058
     Dates: start: 20070501
  5. AVANDIA [Concomitant]
  6. GLIMEPIRIDE [Concomitant]
  7. NOVOLOG [Concomitant]
  8. INSULIN (INSULIN) [Concomitant]
  9. PROCRIT [Concomitant]
  10. FUROSEMIDE [Concomitant]
  11. LISINOPRIL [Concomitant]
  12. METOPROLOL TARTRATE [Concomitant]
  13. SINEMET [Concomitant]
  14. METOLAZONE [Concomitant]
  15. ADVAIR DISKUS (FLUTICASONE PROPIONATE, SALMETEROL XINAFOATE) [Concomitant]
  16. PROVENTIL HFA (SALBUTAMOL) [Concomitant]
  17. IPRATROPIUM BROMIDE [Concomitant]
  18. DOSTINEX [Concomitant]
  19. TESTOSTERONE [Concomitant]
  20. ALLEGRA [Concomitant]
  21. ZYRTEC [Concomitant]
  22. HYDROCODONE W/PARACETAMOL (HYDROCODONE, PARACETAMOL) [Concomitant]
  23. ASPIRIN [Concomitant]
  24. FISH OIL (FISH OIL) [Concomitant]
  25. MULTIVITAMIN [Concomitant]

REACTIONS (8)
  - BLOOD GLUCOSE INCREASED [None]
  - DECREASED APPETITE [None]
  - DEHYDRATION [None]
  - DIARRHOEA [None]
  - DYSPNOEA [None]
  - OEDEMA PERIPHERAL [None]
  - RENAL FAILURE [None]
  - WEIGHT DECREASED [None]
